FAERS Safety Report 8008718-9 (Version None)
Quarter: 2011Q4

REPORT INFORMATION
  Report Type: 
  Country: None (occurrence: None)
  Receive Date: 20111227
  Receipt Date: 20111221
  Transmission Date: 20120403
  Serious: Yes (Hospitalization)
  Sender: FDA-Public Use
  Company Number: US-B.I. PHARMACEUTICALS,INC./RIDGEFIELD-2011-BP-28594BP

PATIENT
  Sex: Female

DRUGS (2)
  1. HEPARIN [Suspect]
     Dates: start: 20111221
  2. PRADAXA [Suspect]
     Indication: ATRIAL FIBRILLATION
     Dosage: 300 MG
     Route: 048
     Dates: start: 20111219, end: 20111220

REACTIONS (4)
  - CHEST PAIN [None]
  - CATHETER SITE HAEMATOMA [None]
  - COAGULATION TIME PROLONGED [None]
  - TROPONIN INCREASED [None]
